FAERS Safety Report 6130829-3 (Version None)
Quarter: 2009Q1

REPORT INFORMATION
  Report Type: 
  Country: None (occurrence: None)
  Receive Date: 20090325
  Receipt Date: 20090316
  Transmission Date: 20090719
  Serious: Yes (Other)
  Sender: FDA-Public Use
  Company Number: NL-BAYER-200826490GPV

PATIENT
  Age: 0 Hour
  Sex: Male
  Weight: 1.75 kg

DRUGS (1)
  1. YASMIN [Suspect]
     Route: 064
     Dates: end: 20071101

REACTIONS (5)
  - BLOOD BILIRUBIN INCREASED [None]
  - JAUNDICE CHOLESTATIC [None]
  - MATERNAL DRUGS AFFECTING FOETUS [None]
  - PREMATURE BABY [None]
  - YELLOW SKIN [None]
